FAERS Safety Report 8134147-3 (Version None)
Quarter: 2012Q1

REPORT INFORMATION
  Report Type: 
  Country: None (occurrence: None)
  Receive Date: 20120213
  Receipt Date: 20120213
  Transmission Date: 20120608
  Serious: Yes (Hospitalization, Other)
  Sender: FDA-Public Use
  Company Number: None

PATIENT
  Age: 75 Year
  Sex: Male
  Weight: 96.6 kg

DRUGS (2)
  1. ENOXAPARIN [Suspect]
     Dosage: 100 MG BID SQ
     Route: 058
     Dates: start: 20110519, end: 20110525
  2. WARFARIN SODIUM [Suspect]
     Indication: ATRIAL FIBRILLATION
     Dosage: 3.93 EVERY DAY PO
     Route: 048
     Dates: start: 20090201

REACTIONS (5)
  - MUSCULAR WEAKNESS [None]
  - HYPOAESTHESIA [None]
  - PARALYSIS [None]
  - INTERNATIONAL NORMALISED RATIO DECREASED [None]
  - TRANSIENT ISCHAEMIC ATTACK [None]
